FAERS Safety Report 6468798-9 (Version None)
Quarter: 2009Q4

REPORT INFORMATION
  Report Type: 
  Country: None (occurrence: None)
  Receive Date: 20091203
  Receipt Date: 20071221
  Transmission Date: 20100525
  Serious: Yes (Hospitalization)
  Sender: FDA-Public Use
  Company Number: US-ELI_LILLY_AND_COMPANY-US200511000024

PATIENT
  Sex: Male
  Weight: 118.82 kg

DRUGS (3)
  1. SOMATROPIN [Suspect]
     Indication: HYPOPITUITARISM
     Dosage: 0.72 MG, DAILY (1/D)
     Route: 058
     Dates: start: 20021004
  2. ASPIRIN [Concomitant]
  3. SYNTHROID [Concomitant]

REACTIONS (1)
  - GRAND MAL CONVULSION [None]
